FAERS Safety Report 14924593 (Version 3)
Quarter: 2018Q2

REPORT INFORMATION
  Report Type: Spontaneous
  Country: US (occurrence: US)
  Receive Date: 20180522
  Receipt Date: 20180627
  Transmission Date: 20180711
  Serious: Yes (Hospitalization, Other)
  Sender: FDA-Public Use
  Company Number: US-PFIZER INC-2018207428

PATIENT
  Age: 75 Year
  Sex: Female
  Weight: 102 kg

DRUGS (3)
  1. XELJANZ XR [Suspect]
     Active Substance: TOFACITINIB CITRATE
     Indication: RHEUMATOID ARTHRITIS
     Dosage: 11 MG, 1X/DAY
  2. XELJANZ XR [Suspect]
     Active Substance: TOFACITINIB CITRATE
     Dosage: 11 MG, UNK
     Route: 048
     Dates: start: 201611, end: 201802
  3. XELJANZ XR [Suspect]
     Active Substance: TOFACITINIB CITRATE
     Dosage: 11 MG, ONCE A DAY
     Route: 048
     Dates: start: 201802, end: 201805

REACTIONS (10)
  - Renal impairment [Unknown]
  - Pneumonia [Recovered/Resolved]
  - Influenza [Recovered/Resolved]
  - Nausea [Not Recovered/Not Resolved]
  - Acute kidney injury [Unknown]
  - Cardiac failure congestive [Recovered/Resolved]
  - Renal failure [Not Recovered/Not Resolved]
  - Condition aggravated [Not Recovered/Not Resolved]
  - Chronic kidney disease [Not Recovered/Not Resolved]
  - Vomiting [Unknown]

NARRATIVE: CASE EVENT DATE: 201512
